FAERS Safety Report 5703065-X (Version None)
Quarter: 2008Q2

REPORT INFORMATION
  Report Type: 
  Country: None (occurrence: None)
  Receive Date: 20080411
  Receipt Date: 20080407
  Transmission Date: 20081010
  Serious: Yes (Other)
  Sender: FDA-Public Use
  Company Number: TN-PFIZER INC-2008030123

PATIENT
  Age: 68 Year
  Sex: Female

DRUGS (3)
  1. AMLODIN [Suspect]
     Indication: HYPERTENSION
     Route: 048
  2. ATORVASTATIN [Concomitant]
     Route: 048
  3. ATENOLOL [Concomitant]
     Route: 048

REACTIONS (1)
  - PARKINSON'S DISEASE [None]
